FAERS Safety Report 9312836 (Version 2)
Quarter: 2013Q3

REPORT INFORMATION
  Report Type: Spontaneous
  Country: US (occurrence: US)
  Receive Date: 20130528
  Receipt Date: 20130707
  Transmission Date: 20140515
  Serious: Yes (Other)
  Sender: FDA-Public Use
  Company Number: US-009507513-1305USA015186

PATIENT
  Sex: 0
  Weight: 76.83 kg

DRUGS (1)
  1. NEXPLANON [Suspect]
     Dosage: 1 ROD
     Route: 059
     Dates: start: 20130523

REACTIONS (4)
  - Surgery [Unknown]
  - Device kink [Unknown]
  - Product quality issue [Unknown]
  - No adverse event [Unknown]
